FAERS Safety Report 10424437 (Version 3)
Quarter: 2015Q2

REPORT INFORMATION
  Report Type: Spontaneous
  Country: JP (occurrence: JP)
  Receive Date: 20140902
  Receipt Date: 20150618
  Transmission Date: 20150821
  Serious: Yes (Other)
  Sender: FDA-Public Use
  Company Number: JP-SA-2014SA117269

PATIENT
  Age: 67 Year
  Sex: Male

DRUGS (1)
  1. BCG FOR IMMUNOTHERAPY [Suspect]
     Active Substance: BACILLUS CALMETTE-GUERIN ANTIGEN, UNSPECIFIED SUBSTRAIN
     Indication: BLADDER CANCER
     Route: 043

REACTIONS (12)
  - Ocular hyperaemia [Recovered/Resolved]
  - Eye pain [Recovered/Resolved]
  - Limbal swelling [Recovered/Resolved]
  - Foreign body sensation in eyes [Recovered/Resolved]
  - Conjunctival hyperaemia [Recovered/Resolved]
  - Urethritis [Recovered/Resolved]
  - Conjunctivitis [Recovered/Resolved]
  - Bladder irritation [Recovered/Resolved]
  - Reiter^s syndrome [Recovered/Resolved]
  - Purulent discharge [Recovered/Resolved]
  - Eye pruritus [Recovered/Resolved]
  - Haematuria [Recovered/Resolved]
